FAERS Safety Report 20672571 (Version 1)
Quarter: 2022Q2

REPORT INFORMATION
  Report Type: Spontaneous
  Country: CA (occurrence: CA)
  Receive Date: 20220405
  Receipt Date: 20220405
  Transmission Date: 20220720
  Serious: Yes (Death, Other)
  Sender: FDA-Public Use
  Company Number: CA-SA-SAC20220404000917

PATIENT
  Sex: Male

DRUGS (1)
  1. ZANTAC [Suspect]
     Active Substance: RANITIDINE HYDROCHLORIDE
     Dosage: UNK
     Route: 065
     Dates: start: 1980

REACTIONS (3)
  - Rectal adenocarcinoma [Fatal]
  - Pain [Fatal]
  - Loss of personal independence in daily activities [Fatal]

NARRATIVE: CASE EVENT DATE: 20181001
